FAERS Safety Report 10453348 (Version 2)
Quarter: 2014Q3

REPORT INFORMATION
  Report Type: Spontaneous
  Country: IR (occurrence: FR)
  Receive Date: 20140915
  Receipt Date: 20140915
  Transmission Date: 20150326
  Serious: Yes (Death, Life-Threatening, Other)
  Sender: FDA-Public Use
  Company Number: FR-PFIZER INC-2014255103

PATIENT
  Age: 52 Year
  Sex: Male

DRUGS (2)
  1. METHYLPREDNISOLONE [Suspect]
     Active Substance: METHYLPREDNISOLONE
     Indication: PEMPHIGUS
     Dosage: 80 MG, DAILY
     Dates: start: 197808, end: 197808
  2. METHYLPREDNISOLONE [Suspect]
     Active Substance: METHYLPREDNISOLONE
     Dosage: THE DOSE DECREASED, THE CUMULATIVE DOSE WAS 1.60 G
     Dates: start: 1978

REACTIONS (6)
  - Gastrointestinal haemorrhage [Fatal]
  - Kaposi^s sarcoma [Unknown]
  - Disseminated tuberculosis [Fatal]
  - Escherichia sepsis [Fatal]
  - Cardiomyopathy [Fatal]
  - Diabetes mellitus [Fatal]

NARRATIVE: CASE EVENT DATE: 1978
